FAERS Safety Report 8210818-5 (Version None)
Quarter: 2012Q1

REPORT INFORMATION
  Report Type: 
  Country: None (occurrence: None)
  Receive Date: 20120315
  Receipt Date: 20120309
  Transmission Date: 20120608
  Serious: No
  Sender: FDA-Public Use
  Company Number: US-BIOGENIDEC-2012BI008767

PATIENT
  Age: 51 Year
  Sex: Female

DRUGS (1)
  1. TYSABRI [Suspect]
     Indication: MULTIPLE SCLEROSIS
     Route: 042
     Dates: start: 20091012

REACTIONS (7)
  - URTICARIA [None]
  - JOINT DISLOCATION [None]
  - CYSTITIS [None]
  - JOINT EFFUSION [None]
  - ARTHRALGIA [None]
  - LYMPHADENOPATHY [None]
  - MUSCULOSKELETAL PAIN [None]
